FAERS Safety Report 8537310-2 (Version None)
Quarter: 2012Q3

REPORT INFORMATION
  Report Type: 
  Country: None (occurrence: None)
  Receive Date: 20120725
  Receipt Date: 20120720
  Transmission Date: 20120928
  Serious: Yes (Other)
  Sender: FDA-Public Use
  Company Number: IT-PFIZER INC-2012125395

PATIENT
  Age: 67 Year
  Sex: Male

DRUGS (5)
  1. BISOPROLOL FUMARATE [Concomitant]
     Dosage: UNK
  2. URSOBIL [Concomitant]
     Dosage: 250 MG, UNK
  3. FORZAAR [Concomitant]
     Dosage: 12.5 MG, UNK
     Route: 048
  4. ATORVASTATIN CALCIUM [Suspect]
     Indication: ISCHAEMIC HEART DISEASE PROPHYLAXIS
     Dosage: 20 MG, DAILY
     Route: 048
     Dates: start: 20120403, end: 20120512
  5. TICLID [Concomitant]
     Dosage: 250 MG, UNK

REACTIONS (4)
  - HALLUCINATION [None]
  - NIGHTMARE [None]
  - IRRITABILITY [None]
  - INSOMNIA [None]
